FAERS Safety Report 4939533-8 (Version None)
Quarter: 2006Q1

REPORT INFORMATION
  Report Type: 
  Country: None (occurrence: None)
  Receive Date: 20060306
  Receipt Date: 20060227
  Transmission Date: 20060701
  Serious: Yes (Hospitalization)
  Sender: FDA-Public Use
  Company Number: HQWYE649003FEB06

PATIENT
  Age: 2 Month
  Sex: Female

DRUGS (2)
  1. ADVIL [Suspect]
     Indication: PYREXIA
     Dosage: ORAL
     Route: 048
     Dates: start: 20060119, end: 20060121
  2. ACETAMINOPHEN [Suspect]
     Indication: PYREXIA
     Dates: start: 20060119

REACTIONS (2)
  - EPIDERMOLYSIS BULLOSA [None]
  - PYREXIA [None]
